FAERS Safety Report 19000467 (Version 1)
Quarter: 2021Q1

REPORT INFORMATION
  Report Type: Spontaneous
  Country: US (occurrence: US)
  Receive Date: 20210311
  Receipt Date: 20210311
  Transmission Date: 20210420
  Serious: No
  Sender: FDA-Public Use
  Company Number: US-ADAMAS_PHARMACEUTICALS-USA-POI1235202100008

PATIENT
  Age: 78 Year
  Sex: Female

DRUGS (2)
  1. OSMOLEX ER [Suspect]
     Active Substance: AMANTADINE
     Dates: start: 201905
  2. OSMOLEX ER [Suspect]
     Active Substance: AMANTADINE
     Indication: PARKINSON^S DISEASE
     Dosage: UNK
     Dates: start: 201902, end: 201905

REACTIONS (4)
  - Anxiety [Unknown]
  - Bradykinesia [Unknown]
  - Device power source issue [Recovered/Resolved]
  - Medical device battery replacement [Recovered/Resolved]

NARRATIVE: CASE EVENT DATE: 201907
